FAERS Safety Report 5745194-0 (Version None)
Quarter: 2008Q2

REPORT INFORMATION
  Report Type: 
  Country: None (occurrence: None)
  Receive Date: 20080521
  Receipt Date: 20080519
  Transmission Date: 20081010
  Serious: Yes (Other)
  Sender: FDA-Public Use
  Company Number: US-GENENTECH-259675

PATIENT
  Sex: Male
  Weight: 19.2 kg

DRUGS (5)
  1. HUMATROPE [Suspect]
     Indication: GROWTH RETARDATION
     Dosage: 0.9 MG, 7/WEEK
     Route: 058
     Dates: start: 20080304, end: 20080416
  2. HUMATROPE [Suspect]
     Indication: RENAL FAILURE
  3. ENALAPRIL MALEATE [Concomitant]
     Indication: DRUG USE FOR UNKNOWN INDICATION
     Dates: start: 20020101
  4. LEVOXYL [Concomitant]
     Indication: DRUG USE FOR UNKNOWN INDICATION
     Dates: start: 20030301
  5. SODIUM BICARBONATE [Concomitant]
     Indication: DRUG USE FOR UNKNOWN INDICATION
     Dates: start: 20020101

REACTIONS (1)
  - INTRACRANIAL PRESSURE INCREASED [None]
